FAERS Safety Report 24119299 (Version 1)
Quarter: 2024Q3

REPORT INFORMATION
  Report Type: Spontaneous
  Country: PS (occurrence: PS)
  Receive Date: 20240722
  Receipt Date: 20240722
  Transmission Date: 20241016
  Serious: Yes (Hospitalization, Other)
  Sender: ANI
  Company Number: PS-ANIPHARMA-2024-PS-000002

PATIENT
  Age: 49 Year
  Sex: Male

DRUGS (3)
  1. CLOPIDOGREL BISULFATE [Suspect]
     Active Substance: CLOPIDOGREL BISULFATE
     Indication: Angina unstable
     Dosage: 300 MG
  2. ASPIRIN [Suspect]
     Active Substance: ASPIRIN
     Indication: Angina unstable
     Dosage: 300 MG
  3. HEPARIN [Suspect]
     Active Substance: HEPARIN SODIUM
     Indication: Angina unstable
     Dosage: 5000 IU

REACTIONS (1)
  - Splenic rupture [Unknown]
